FAERS Safety Report 25810036 (Version 3)
Quarter: 2025Q4

REPORT INFORMATION
  Report Type: Spontaneous
  Country: CH (occurrence: CH)
  Receive Date: 20250917
  Receipt Date: 20251216
  Transmission Date: 20260117
  Serious: Yes (Congenital Anomaly, Other)
  Sender: ABBVIE
  Company Number: CH-ABBVIE-6458719

PATIENT
  Sex: Male

DRUGS (1)
  1. HUMIRA [Suspect]
     Active Substance: ADALIMUMAB
     Indication: Maternal exposure timing unspecified
     Dosage: PATIENT ROA: TRANSPLACENTAL
     Route: 065

REACTIONS (3)
  - Spinal muscular atrophy [Unknown]
  - Foetal exposure during pregnancy [Unknown]
  - Alpha tumour necrosis factor increased [Unknown]
